FAERS Safety Report 8810299 (Version 2)
Quarter: 2013Q1

REPORT INFORMATION
  Report Type: Spontaneous
  Country: US (occurrence: US)
  Receive Date: 20120926
  Receipt Date: 20130313
  Transmission Date: 20140127
  Serious: No
  Sender: FDA-Public Use
  Company Number: US-009507513-1209USA006199

PATIENT
  Age: 26 Year
  Sex: Male
  Weight: 74.83 kg

DRUGS (2)
  1. PEGINTRON [Suspect]
     Indication: HEPATITIS C
     Dosage: 120 MCG, QW
     Route: 058
     Dates: start: 20110826, end: 20120720
  2. RIBASPHERE [Suspect]
     Indication: HEPATITIS C
     Dosage: TOTAL DAILY DOSE 800 MG
     Route: 048
     Dates: start: 20110826, end: 20120720

REACTIONS (1)
  - Lymphadenopathy [Unknown]
